FAERS Safety Report 5885792-7 (Version None)
Quarter: 2008Q3

REPORT INFORMATION
  Report Type: 
  Country: None (occurrence: None)
  Receive Date: 20080917
  Receipt Date: 20080915
  Transmission Date: 20090109
  Serious: Yes (Hospitalization)
  Sender: FDA-Public Use
  Company Number: US-JNJFOC-20080901214

PATIENT
  Sex: Male
  Weight: 63.3 kg

DRUGS (3)
  1. REMICADE [Suspect]
     Indication: INFLAMMATION
     Route: 042
  2. PREDNISONE TAB [Concomitant]
  3. METRONIDAZOLE [Concomitant]

REACTIONS (1)
  - COLITIS [None]
